FAERS Safety Report 8561052-0 (Version None)
Quarter: 2012Q3

REPORT INFORMATION
  Report Type: 
  Country: None (occurrence: None)
  Receive Date: 20120802
  Receipt Date: 20120326
  Transmission Date: 20120928
  Serious: No
  Sender: FDA-Public Use
  Company Number: US-BRISTOL-MYERS SQUIBB COMPANY-16231656

PATIENT
  Age: 17 Year
  Sex: Female

DRUGS (4)
  1. REYATAZ [Suspect]
     Indication: HIV INFECTION
  2. ISENTRESS [Concomitant]
  3. BACTRIM [Concomitant]
     Indication: PROPHYLAXIS
  4. STAVUDINE [Suspect]
     Indication: HIV INFECTION

REACTIONS (2)
  - DRUG ADMINISTRATION ERROR [None]
  - ABDOMINAL PAIN UPPER [None]
